FAERS Safety Report 10331858 (Version 4)
Quarter: 2014Q3

REPORT INFORMATION
  Report Type: Report from Study
  Country: JP (occurrence: JP)
  Receive Date: 20140722
  Receipt Date: 20140818
  Transmission Date: 20150326
  Serious: Yes (Hospitalization, Other)
  Sender: FDA-Public Use
  Company Number: JP-ABBVIE-14P-087-1215633-00

PATIENT
  Age: 11 Month
  Sex: Female
  Weight: 5.37 kg

DRUGS (3)
  1. SYNAGIS [Suspect]
     Active Substance: PALIVIZUMAB
     Route: 030
     Dates: start: 20140222, end: 20140222
  2. CLAFORAN [Suspect]
     Active Substance: CEFOTAXIME SODIUM
     Indication: PNEUMONIA
     Route: 041
     Dates: start: 20140304, end: 20140306
  3. SYNAGIS [Suspect]
     Active Substance: PALIVIZUMAB
     Indication: PREMATURE BABY
     Route: 030
     Dates: start: 20140118, end: 20140118

REACTIONS (9)
  - Dyspnoea [Recovering/Resolving]
  - Dyspnoea [Unknown]
  - Sputum increased [Unknown]
  - Pyrexia [Recovering/Resolving]
  - Lung disorder [Unknown]
  - Tracheal haemorrhage [Recovered/Resolved]
  - Bronchitis [Recovering/Resolving]
  - Thrombocytopenia [Recovered/Resolved]
  - Tracheomalacia [Unknown]

NARRATIVE: CASE EVENT DATE: 20140120
